FAERS Safety Report 4490814-4 (Version None)
Quarter: 2004Q4

REPORT INFORMATION
  Report Type: 
  Country: None (occurrence: None)
  Receive Date: 20041102
  Receipt Date: 20041026
  Transmission Date: 20050328
  Serious: Yes (Hospitalization)
  Sender: FDA-Public Use
  Company Number: DE-ROCHE-384446

PATIENT
  Age: 59 Year
  Sex: Female

DRUGS (2)
  1. CAPECITABINE [Suspect]
     Dosage: DOSE REPORTED AS ^40000MG FROM 26-APR-2004 TO 06-AUG-2004 (DAILY FROM 23-JUL-2004 TO 06-AUG-2004^.
     Route: 048
     Dates: start: 20040426, end: 20040806
  2. PACLITAXEL [Suspect]
     Dosage: TREATMENT GIVEN ONCE PER CYCLE.
     Route: 042
     Dates: start: 20040426, end: 20040723

REACTIONS (4)
  - DEHYDRATION [None]
  - LEUKOPENIA [None]
  - PERSONALITY CHANGE [None]
  - STOMATITIS [None]
